FAERS Safety Report 24324116 (Version 1)
Quarter: 2024Q3

REPORT INFORMATION
  Report Type: Spontaneous
  Country: US (occurrence: US)
  Receive Date: 20240916
  Receipt Date: 20240916
  Transmission Date: 20241016
  Serious: No
  Sender: PFIZER
  Company Number: US-PFIZER INC-202400255864

PATIENT
  Age: 20 Year
  Sex: Male

DRUGS (1)
  1. XELJANZ [Suspect]
     Active Substance: TOFACITINIB CITRATE
     Indication: Still^s disease
     Dosage: 5 MG, 2X/DAY (1 TABLET IN THE MORNING AND 1 TABLET IN THE EVENING)
     Route: 048
     Dates: start: 20240425

REACTIONS (7)
  - Irritable bowel syndrome [Not Recovered/Not Resolved]
  - Migraine [Not Recovered/Not Resolved]
  - Amnesia [Not Recovered/Not Resolved]
  - Illness [Unknown]
  - Upper respiratory tract infection [Not Recovered/Not Resolved]
  - Hypertension [Not Recovered/Not Resolved]
  - Off label use [Unknown]

NARRATIVE: CASE EVENT DATE: 20240101
